FAERS Safety Report 26026878 (Version 2)
Quarter: 2025Q4

REPORT INFORMATION
  Report Type: Report from Study
  Country: US (occurrence: US)
  Receive Date: 20251111
  Receipt Date: 20251120
  Transmission Date: 20260118
  Serious: No
  Sender: BRISTOL-MYERS SQUIBB COMPANY
  Company Number: US-BRISTOL-MYERS SQUIBB COMPANY-2025-152775

PATIENT
  Age: 64 Year
  Sex: Male

DRUGS (2)
  1. ELIQUIS [Suspect]
     Active Substance: APIXABAN
     Indication: Heart rate irregular
  2. ELIQUIS [Suspect]
     Active Substance: APIXABAN

REACTIONS (4)
  - Inability to afford medication [Unknown]
  - Therapy interrupted [Unknown]
  - Off label use [Unknown]
  - Treatment noncompliance [Unknown]
